FAERS Safety Report 4437400-X (Version None)
Quarter: 2004Q3

REPORT INFORMATION
  Report Type: 
  Country: None (occurrence: None)
  Receive Date: 20040827
  Receipt Date: 20040819
  Transmission Date: 20050211
  Serious: Yes (Hospitalization)
  Sender: FDA-Public Use
  Company Number: 2004-03716

PATIENT
  Age: 61 Year
  Sex: Female

DRUGS (9)
  1. METFORMIN HCL [Suspect]
     Indication: DIABETES MELLITUS NON-INSULIN-DEPENDENT
     Dosage: ORAL
     Route: 048
  2. ACETYLSALICYLIC ACID SRT [Concomitant]
  3. ATENOLOL [Concomitant]
  4. CLOPIDOGREL [Concomitant]
  5. LISINOPRIL [Concomitant]
  6. NITRATE [Concomitant]
  7. STARLIX [Concomitant]
  8. IBUPROFEN [Concomitant]
  9. AMLODIPINE [Concomitant]

REACTIONS (4)
  - LACTIC ACIDOSIS [None]
  - PANCREATITIS [None]
  - RENAL FAILURE [None]
  - THERAPEUTIC AGENT TOXICITY [None]
